FAERS Safety Report 21766198 (Version 1)
Quarter: 2022Q4

REPORT INFORMATION
  Report Type: Spontaneous
  Country: SE (occurrence: SE)
  Receive Date: 20221222
  Receipt Date: 20221222
  Transmission Date: 20230113
  Serious: Yes (Other)
  Sender: FDA-Public Use
  Company Number: None

PATIENT
  Age: 62 Year
  Sex: Female

DRUGS (6)
  1. METHIMAZOLE [Suspect]
     Active Substance: METHIMAZOLE
     Indication: Basedow^s disease
     Dosage: UNK, 2+2
     Route: 048
     Dates: start: 20220920, end: 20221014
  2. LEVOTHYROXINE SODIUM [Suspect]
     Active Substance: LEVOTHYROXINE SODIUM
     Indication: Adjuvant therapy
     Dosage: 50 MILLIGRAM, QD, 100 MICROGRAM 0,5X1
     Route: 048
     Dates: start: 20221006, end: 20221012
  3. ENALAPRIL [Concomitant]
     Active Substance: ENALAPRIL
     Dosage: 5 MILLIGRAM, 5 MG 1
     Route: 048
     Dates: start: 20180605
  4. ATENOLOL [Concomitant]
     Active Substance: ATENOLOL
     Dosage: 50 MILLIGRAM (50 MG 1)
     Route: 048
     Dates: start: 20130830
  5. INDERAL [Concomitant]
     Active Substance: PROPRANOLOL HYDROCHLORIDE
     Dosage: 10 MILLIGRAM, 2+2+2
     Route: 048
     Dates: start: 20220909
  6. BENDROFLUMETHIAZIDE [Concomitant]
     Active Substance: BENDROFLUMETHIAZIDE
     Dosage: 5 MILLIGRAM, 5 MG 1
     Route: 048
     Dates: start: 20110706

REACTIONS (3)
  - Throat irritation [Recovering/Resolving]
  - Rash pruritic [Recovering/Resolving]
  - Hepatic enzyme increased [Not Recovered/Not Resolved]

NARRATIVE: CASE EVENT DATE: 20221010
